FAERS Safety Report 9107908 (Version 1)
Quarter: 2013Q1

REPORT INFORMATION
  Report Type: Spontaneous
  Country: US (occurrence: US)
  Receive Date: 20130221
  Receipt Date: 20130221
  Transmission Date: 20140127
  Serious: No
  Sender: FDA-Public Use
  Company Number: US-009507513-1302USA009417

PATIENT
  Sex: Female

DRUGS (3)
  1. SINGULAIR [Suspect]
     Indication: ASTHMA
     Dosage: UNK
     Route: 048
  2. PROAIR (FLUTICASONE PROPIONATE) [Concomitant]
  3. ALBUTEROL [Concomitant]

REACTIONS (1)
  - Allergic sinusitis [Unknown]
